FAERS Safety Report 7860906-8 (Version None)
Quarter: 2011Q4

REPORT INFORMATION
  Report Type: 
  Country: None (occurrence: None)
  Receive Date: 20111027
  Receipt Date: 20111017
  Transmission Date: 20120403
  Serious: Yes (Other)
  Sender: FDA-Public Use
  Company Number: GB-MERCK-1109GBR00054

PATIENT
  Age: 37 Year
  Sex: Female

DRUGS (10)
  1. IRBESARTAN [Concomitant]
     Route: 065
     Dates: end: 20110831
  2. JANUVIA [Suspect]
     Indication: TYPE 2 DIABETES MELLITUS
     Route: 048
     Dates: start: 20101119, end: 20110831
  3. JANUVIA [Suspect]
     Indication: HYPERTENSION
     Route: 048
     Dates: start: 20101119, end: 20110831
  4. PIOGLITAZONE HYDROCHLORIDE [Concomitant]
     Route: 065
     Dates: end: 20110831
  5. PIOGLITAZONE HYDROCHLORIDE [Concomitant]
     Route: 065
     Dates: start: 20110101
  6. METFORMIN [Concomitant]
     Route: 065
  7. ACETAMINOPHEN [Concomitant]
     Route: 065
  8. JANUVIA [Suspect]
     Route: 048
     Dates: start: 20110101
  9. JANUVIA [Suspect]
     Route: 048
     Dates: start: 20110101
  10. IRBESARTAN [Concomitant]
     Route: 065
     Dates: start: 20110101

REACTIONS (2)
  - ABORTION SPONTANEOUS [None]
  - MATERNAL EXPOSURE DURING PREGNANCY [None]
